FAERS Safety Report 16526913 (Version 1)
Quarter: 2019Q3

REPORT INFORMATION
  Report Type: Spontaneous
  Country: TR (occurrence: TR)
  Receive Date: 20190703
  Receipt Date: 20190703
  Transmission Date: 20191004
  Serious: Yes (Other)
  Sender: FDA-Public Use
  Company Number: PHHY2019TR149827

PATIENT
  Age: 43 Year
  Sex: Male

DRUGS (5)
  1. PREDNISOLONE. [Suspect]
     Active Substance: PREDNISOLONE
     Indication: BEHCET^S SYNDROME
     Dosage: 16 MG, QD
     Route: 065
  2. CYCLOPENTOLATE HYDROCHLORIDE. [Suspect]
     Active Substance: CYCLOPENTOLATE HYDROCHLORIDE
     Indication: BEHCET^S SYNDROME
     Dosage: 1 %, BID
     Route: 061
  3. AZATHIOPRINE. [Suspect]
     Active Substance: AZATHIOPRINE
     Indication: BEHCET^S SYNDROME
     Dosage: 3 MG/KG, QD (2 TO 3 MG/KG)
     Route: 065
  4. PREDNISOLONE ACETATE. [Suspect]
     Active Substance: PREDNISOLONE ACETATE
     Indication: BEHCET^S SYNDROME
     Dosage: 1% PER HOUR EVERY DAY FOR RIGHT EYE
     Route: 061
  5. COLCHICINE. [Suspect]
     Active Substance: COLCHICINE
     Indication: BEHCET^S SYNDROME
     Dosage: 2 DF, BID 2X2 PER DAY,
     Route: 065

REACTIONS (2)
  - Product use in unapproved indication [Unknown]
  - Uveitis [Unknown]
